FAERS Safety Report 22366869 (Version 1)
Quarter: 2023Q2

REPORT INFORMATION
  Report Type: Spontaneous
  Country: US (occurrence: None)
  Receive Date: 20230524
  Receipt Date: 20230524
  Transmission Date: 20230721
  Serious: No
  Sender: FDA-Public Use
  Company Number: None

PATIENT
  Age: 63 Year
  Sex: Female

DRUGS (1)
  1. OPSUMIT [Suspect]
     Active Substance: MACITENTAN

REACTIONS (6)
  - Tachycardia [None]
  - Hyponatraemia [None]
  - Hyperkalaemia [None]
  - Acute kidney injury [None]
  - Pneumonia [None]
  - Atrial flutter [None]

NARRATIVE: CASE EVENT DATE: 20230521
